FAERS Safety Report 13405294 (Version 1)
Quarter: 2017Q2

REPORT INFORMATION
  Report Type: Report from Study
  Country: US (occurrence: US)
  Receive Date: 20170405
  Receipt Date: 20170405
  Transmission Date: 20170830
  Serious: Yes (Other)
  Sender: FDA-Public Use
  Company Number: US-ROCHE-1914540

PATIENT

DRUGS (2)
  1. CAPECITABINE. [Suspect]
     Active Substance: CAPECITABINE
     Indication: COLORECTAL CANCER METASTATIC
     Route: 048
  2. GEMCITABINE [Suspect]
     Active Substance: GEMCITABINE\GEMCITABINE HYDROCHLORIDE
     Indication: COLORECTAL CANCER METASTATIC
     Route: 065

REACTIONS (5)
  - Thrombocytopenia [Unknown]
  - Neutropenia [Unknown]
  - Palmar-plantar erythrodysaesthesia syndrome [Unknown]
  - Gastrointestinal toxicity [Unknown]
  - Mucosal inflammation [Unknown]
